FAERS Safety Report 9983305 (Version 1)
Quarter: 2014Q1

REPORT INFORMATION
  Report Type: Report from Study
  Country: US (occurrence: US)
  Receive Date: 20140307
  Receipt Date: 20140307
  Transmission Date: 20141002
  Serious: Yes (Other)
  Sender: FDA-Public Use
  Company Number: US-009507513-1402USA013455

PATIENT
  Age: 19 Year
  Sex: Female

DRUGS (1)
  1. ETONOGESTREL IMPLANT- IMPLANON NEXT [Suspect]
     Indication: CHEMICAL CONTRACEPTION
     Dosage: 68 MG
     Route: 059
     Dates: start: 20130118

REACTIONS (3)
  - Ectopic pregnancy termination [Unknown]
  - Ectopic pregnancy [Recovered/Resolved]
  - Unintended pregnancy [Recovered/Resolved]
